FAERS Safety Report 21056688 (Version 1)
Quarter: 2022Q3

REPORT INFORMATION
  Report Type: Spontaneous
  Country: CN (occurrence: CN)
  Receive Date: 20220708
  Receipt Date: 20220708
  Transmission Date: 20221027
  Serious: Yes (Hospitalization, Other)
  Sender: FDA-Public Use
  Company Number: None

PATIENT
  Age: 58 Year
  Sex: Female
  Weight: 56.8 kg

DRUGS (4)
  1. CYCLOPHOSPHAMIDE [Suspect]
     Active Substance: CYCLOPHOSPHAMIDE
     Indication: Breast cancer female
     Dosage: 900 MG, QD, CYCLOPHOSPHAMIDE 900 MG + SODIUM CHLORIDE INJECTION 100 ML
     Route: 042
     Dates: start: 20220609, end: 20220609
  2. SODIUM CHLORIDE [Suspect]
     Active Substance: SODIUM CHLORIDE
     Indication: Medication dilution
     Dosage: 100 ML, QD, CYCLOPHOSPHAMIDE 900 MG + SODIUM CHLORIDE INJECTION 100 ML
     Route: 042
     Dates: start: 20220609, end: 20220609
  3. SODIUM CHLORIDE [Suspect]
     Active Substance: SODIUM CHLORIDE
     Dosage: 40 ML, QD, EPIRUBICIN HYDROCHLORIDE 140 MG + SODIUM CHLORIDE INJECTION 40 ML
     Route: 041
     Dates: start: 20220609, end: 20220609
  4. EPIRUBICIN HYDROCHLORIDE [Suspect]
     Active Substance: EPIRUBICIN HYDROCHLORIDE
     Indication: Breast cancer female
     Dosage: 140 MG, QD, EPIRUBICIN HYDROCHLORIDE 140 MG + SODIUM CHLORIDE INJECTION 40 ML
     Route: 041
     Dates: start: 20220609, end: 20220609

REACTIONS (3)
  - Myelosuppression [Recovering/Resolving]
  - Chills [Recovering/Resolving]
  - Pyrexia [Recovering/Resolving]

NARRATIVE: CASE EVENT DATE: 20220617
